FAERS Safety Report 17003120 (Version 3)
Quarter: 2019Q4

REPORT INFORMATION
  Report Type: Spontaneous
  Country: JP (occurrence: JP)
  Receive Date: 20191107
  Receipt Date: 20191126
  Transmission Date: 20200122
  Serious: Yes (Other)
  Sender: FDA-Public Use
  Company Number: JP-AMGEN-JPNSP2019183014

PATIENT
  Age: 89 Year
  Sex: Female

DRUGS (14)
  1. PROTECADIN [Concomitant]
     Active Substance: LAFUTIDINE
     Dosage: 10 MILLIGRAM, QD
     Dates: start: 20191007
  2. MUCOSTA [Concomitant]
     Active Substance: REBAMIPIDE
     Dosage: 200 MILLIGRAM, QD
     Dates: start: 20191007
  3. TOVIAZ [Concomitant]
     Active Substance: FESOTERODINE FUMARATE
     Dosage: 8 MILLIGRAM, QD
     Dates: start: 20191007
  4. LOXOPROFEN [Concomitant]
     Active Substance: LOXOPROFEN
     Dosage: 120 MILLIGRAM, QD
     Dates: start: 20191007
  5. OLMETEC [Concomitant]
     Active Substance: OLMESARTAN MEDOXOMIL
     Indication: HYPERTENSION
     Dosage: 10 MILLIGRAM, QD
     Dates: start: 20181007
  6. BELSOMRA [Concomitant]
     Active Substance: SUVOREXANT
     Dosage: 15 GRAM, QD
     Dates: start: 20191007
  7. LYRICA [Concomitant]
     Active Substance: PREGABALIN
     Dosage: 50 MILLIGRAM, QD
     Dates: start: 20191007, end: 20191016
  8. EVENITY [Suspect]
     Active Substance: ROMOSOZUMAB-AQQG
     Indication: OSTEOPOROSIS
     Dosage: 210 MILLIGRAM
     Route: 058
     Dates: start: 20191007
  9. CILOSTAZOL. [Suspect]
     Active Substance: CILOSTAZOL
     Indication: PRODUCT USED FOR UNKNOWN INDICATION
     Dosage: 100 MILLIGRAM, QD
     Route: 065
     Dates: start: 20191007, end: 20191016
  10. RINLAXER [Concomitant]
     Active Substance: CHLORPHENESIN CARBAMATE
     Dosage: 500 MILLIGRAM, QD
     Dates: start: 20191007
  11. ELIQUIS [Concomitant]
     Active Substance: APIXABAN
     Dosage: 10 MILLIGRAM (5 MG, TWO TABLETS)
     Dates: start: 20191016
  12. ALFAROL [Concomitant]
     Active Substance: ALFACALCIDOL
     Dosage: 1 GRAM, QD
     Dates: start: 20191007
  13. ARICEPT [Concomitant]
     Active Substance: DONEPEZIL HYDROCHLORIDE
     Dosage: 5 MILLIGRAM, QD
     Dates: start: 20191007
  14. TRAMCET [Concomitant]
     Active Substance: ACETAMINOPHEN\TRAMADOL
     Dosage: 2/ (UNKNOWN UNIT), QD
     Dates: start: 20191007, end: 20191016

REACTIONS (4)
  - Pain in jaw [Not Recovered/Not Resolved]
  - Neck pain [Not Recovered/Not Resolved]
  - Deep vein thrombosis [Recovered/Resolved]
  - Back pain [Not Recovered/Not Resolved]

NARRATIVE: CASE EVENT DATE: 2019
